FAERS Safety Report 24415700 (Version 2)
Quarter: 2025Q2

REPORT INFORMATION
  Report Type: Spontaneous
  Country: CA (occurrence: CA)
  Receive Date: 20241009
  Receipt Date: 20250401
  Transmission Date: 20250717
  Serious: Yes (Hospitalization)
  Sender: WAYLIS THERAPEUTICS
  Company Number: CA-WAYLIS-2024-CA-004235

PATIENT
  Age: 54 Year
  Sex: Female

DRUGS (13)
  1. RABEPRAZOLE SODIUM [Suspect]
     Active Substance: RABEPRAZOLE SODIUM
     Indication: Product used for unknown indication
     Route: 048
  2. ALENDRONATE SODIUM [Suspect]
     Active Substance: ALENDRONATE SODIUM
  3. GOLD [Suspect]
     Active Substance: GOLD
  4. ASPIRIN [Suspect]
     Active Substance: ASPIRIN
  5. ETANERCEPT [Suspect]
     Active Substance: ETANERCEPT
  6. CETIRIZINE HYDROCHLORIDE [Suspect]
     Active Substance: CETIRIZINE HYDROCHLORIDE
  7. PREDNISONE [Suspect]
     Active Substance: PREDNISONE
  8. OXYCODONE [Suspect]
     Active Substance: OXYCODONE
  9. METHOTREXATE [Suspect]
     Active Substance: METHOTREXATE
  10. METFORMIN HYDROCHLORIDE [Suspect]
     Active Substance: METFORMIN HYDROCHLORIDE
  11. FOLIC ACID [Suspect]
     Active Substance: FOLIC ACID
  12. VENLAFAXINE HYDROCHLORIDE [Suspect]
     Active Substance: VENLAFAXINE HYDROCHLORIDE
  13. SEMAGLUTIDE [Suspect]
     Active Substance: SEMAGLUTIDE
     Route: 058

REACTIONS (5)
  - Anaphylactic reaction [Unknown]
  - Anxiety [Unknown]
  - Illness [Unknown]
  - Joint injury [Unknown]
  - Lower respiratory tract infection [Unknown]
